FAERS Safety Report 7922934-3 (Version None)
Quarter: 2011Q4

REPORT INFORMATION
  Report Type: 
  Country: None (occurrence: None)
  Receive Date: 20111117
  Receipt Date: 20110125
  Transmission Date: 20120403
  Serious: No
  Sender: FDA-Public Use
  Company Number: US-AMGEN-USASP2011004562

PATIENT
  Sex: Female

DRUGS (1)
  1. ENBREL [Suspect]
     Indication: RHEUMATOID ARTHRITIS
     Dosage: 25 MG, 2 TIMES/WK
     Dates: start: 20020201

REACTIONS (6)
  - ERYTHEMA [None]
  - BLISTER [None]
  - PURULENT DISCHARGE [None]
  - INJECTION SITE PAIN [None]
  - HOT FLUSH [None]
  - FEELING HOT [None]
